FAERS Safety Report 7419002-6 (Version None)
Quarter: 2011Q2

REPORT INFORMATION
  Report Type: 
  Country: None (occurrence: None)
  Receive Date: 20110415
  Receipt Date: 20110413
  Transmission Date: 20111010
  Serious: Yes (Other)
  Sender: FDA-Public Use
  Company Number: DE-ROXANE LABORATORIES, INC.-2011-RO-00512RO

PATIENT
  Age: 73 Year
  Sex: Male

DRUGS (3)
  1. PREDNISOLONE [Suspect]
     Indication: PAIN
     Dosage: 20 MG
     Route: 048
  2. METHOTREXATE [Suspect]
     Indication: RHEUMATOID ARTHRITIS
  3. PREDNISOLONE [Suspect]
     Indication: SKIN LESION

REACTIONS (5)
  - RASH VESICULAR [None]
  - SKIN ULCER HAEMORRHAGE [None]
  - PAIN [None]
  - SKIN NECROSIS [None]
  - PNEUMONIA [None]
